FAERS Safety Report 4611196-0 (Version None)
Quarter: 2005Q1

REPORT INFORMATION
  Report Type: 
  Country: None (occurrence: None)
  Receive Date: 20050314
  Receipt Date: 20040219
  Transmission Date: 20050727
  Serious: Yes (Hospitalization, Other)
  Sender: FDA-Public Use
  Company Number: USA040259741

PATIENT
  Age: 53 Year
  Sex: Female

DRUGS (3)
  1. GEMZAR [Suspect]
     Indication: NON-SMALL CELL LUNG CANCER
     Dates: start: 20040101, end: 20040206
  2. CARBOPLATIN [Concomitant]
  3. TAXOTERE [Concomitant]

REACTIONS (2)
  - ASTHENIA [None]
  - HAEMOLYTIC URAEMIC SYNDROME [None]
